FAERS Safety Report 18095937 (Version 4)
Quarter: 2020Q4

REPORT INFORMATION
  Report Type: Spontaneous
  Country: GR (occurrence: GR)
  Receive Date: 20200730
  Receipt Date: 20201015
  Transmission Date: 20210113
  Serious: Yes (Death)
  Sender: FDA-Public Use
  Company Number: GR-PFIZER INC-2020289006

PATIENT
  Age: 50 Year
  Sex: Female

DRUGS (3)
  1. URSODEOXYCHOLIC ACID [Concomitant]
     Active Substance: URSODIOL
     Indication: HEMIPARESIS
  2. RITUXIMAB. [Suspect]
     Active Substance: RITUXIMAB
     Indication: TUMEFACTIVE MULTIPLE SCLEROSIS
     Dosage: 600 MG, WEEKLY
  3. URSODEOXYCHOLIC ACID [Concomitant]
     Active Substance: URSODIOL
     Indication: HEPATIC ENZYME DECREASED
     Dosage: UNK

REACTIONS (2)
  - Drug ineffective [Fatal]
  - Pneumonia [Fatal]
